FAERS Safety Report 7235073-4 (Version None)
Quarter: 2011Q1

REPORT INFORMATION
  Report Type: 
  Country: None (occurrence: None)
  Receive Date: 20110120
  Receipt Date: 20110118
  Transmission Date: 20110831
  Serious: Yes (Other)
  Sender: FDA-Public Use
  Company Number: US-ABBOTT-11P-163-0698801-00

PATIENT
  Sex: Male
  Weight: 102.15 kg

DRUGS (11)
  1. ATENOLOL [Concomitant]
     Indication: HYPERTENSION
  2. BENAZEPRIL [Concomitant]
     Indication: HYPERTENSION
  3. HUMIRA [Suspect]
     Indication: PSORIASIS
     Dosage: ONCE
     Route: 058
     Dates: start: 20110101, end: 20110101
  4. NIFEDIPINE [Concomitant]
     Indication: HYPERTENSION
  5. LYRICA [Concomitant]
     Indication: NERVE INJURY
  6. HYDROCODONE BITARTRATE + ACETAMINOPHEN [Concomitant]
     Indication: PAIN
  7. HUMIRA [Suspect]
     Route: 058
     Dates: start: 20110101
  8. HYDROCHLOROTHIAZIDE [Concomitant]
     Indication: HYPERTENSION
  9. CLONIDINE [Concomitant]
     Indication: HYPERTENSION
  10. LOVASTATIN [Concomitant]
     Indication: BLOOD CHOLESTEROL INCREASED
  11. SEROQUEL [Concomitant]
     Indication: DEPRESSION

REACTIONS (5)
  - NAUSEA [None]
  - FLUSHING [None]
  - HEADACHE [None]
  - DRY MOUTH [None]
  - BLOOD PRESSURE INCREASED [None]
